FAERS Safety Report 10448597 (Version 1)
Quarter: 2014Q3

REPORT INFORMATION
  Report Type: Spontaneous
  Country: JP (occurrence: JP)
  Receive Date: 20140912
  Receipt Date: 20140912
  Transmission Date: 20150326
  Serious: Yes (Other)
  Sender: FDA-Public Use
  Company Number: JP-AMGEN-JPNSP2014069018

PATIENT

DRUGS (1)
  1. ENBREL [Suspect]
     Active Substance: ETANERCEPT
     Indication: PRODUCT USED FOR UNKNOWN INDICATION
     Dosage: 50 MG, FREQUENCY UNKNOWN
     Route: 058

REACTIONS (2)
  - Laryngeal cancer [Unknown]
  - Swelling face [Unknown]

NARRATIVE: CASE EVENT DATE: 2014
